FAERS Safety Report 25858013 (Version 1)
Quarter: 2025Q3

REPORT INFORMATION
  Report Type: Spontaneous
  Country: EU (occurrence: EU)
  Receive Date: 20250929
  Receipt Date: 20250929
  Transmission Date: 20251020
  Serious: Yes (Hospitalization, Other)
  Sender: CADILA
  Company Number: EU-CPL-005792

PATIENT
  Sex: Male

DRUGS (1)
  1. OLANZAPINE [Suspect]
     Active Substance: OLANZAPINE
     Indication: Epilepsy

REACTIONS (2)
  - Neutropenia [Unknown]
  - Acute lymphocytic leukaemia [Unknown]
